FAERS Safety Report 6534406-1 (Version None)
Quarter: 2010Q1

REPORT INFORMATION
  Report Type: 
  Country: None (occurrence: None)
  Receive Date: 20100108
  Receipt Date: 20100108
  Transmission Date: 20100710
  Serious: Yes (Life-Threatening, Hospitalization)
  Sender: FDA-Public Use
  Company Number: None

PATIENT
  Age: 33 Year
  Sex: Male
  Weight: 81.65 kg

DRUGS (2)
  1. ACYCLOVIR [Suspect]
     Indication: HERPES ZOSTER
     Dosage: 924 MG OTHER IV
     Route: 042
     Dates: start: 20091113, end: 20091115
  2. IBUPROFEN [Suspect]
     Indication: PLANTAR FASCIITIS
     Dosage: 800 MG BID PO
     Route: 048
     Dates: start: 20091110, end: 20091113

REACTIONS (2)
  - RENAL FAILURE ACUTE [None]
  - RENAL TUBULAR NECROSIS [None]
